FAERS Safety Report 20865304 (Version 2)
Quarter: 2025Q1

REPORT INFORMATION
  Report Type: Spontaneous
  Country: US (occurrence: US)
  Receive Date: 20220524
  Receipt Date: 20250108
  Transmission Date: 20250409
  Serious: Yes (Other)
  Sender: BRISTOL-MYERS SQUIBB COMPANY
  Company Number: US-BRISTOL-MYERS SQUIBB COMPANY-2022-039554

PATIENT
  Age: 81 Year
  Sex: Male

DRUGS (1)
  1. POMALYST [Suspect]
     Active Substance: POMALIDOMIDE
     Indication: Plasma cell myeloma
     Dosage: DRUG THERAPY ON HOLD- WILL RESTART THERAPY ON 05/13/2022-
     Route: 048
     Dates: start: 20170929

REACTIONS (3)
  - Generalised tonic-clonic seizure [Unknown]
  - Fall [Unknown]
  - Spinal compression fracture [Unknown]

NARRATIVE: CASE EVENT DATE: 20220212
